FAERS Safety Report 10678923 (Version 1)
Quarter: 2014Q4

REPORT INFORMATION
  Report Type: Spontaneous
  Country: US (occurrence: None)
  Receive Date: 20141224
  Receipt Date: 20141224
  Transmission Date: 20150529
  Serious: Yes (Hospitalization)
  Sender: FDA-Public Use
  Company Number: None

PATIENT
  Sex: Male
  Weight: 110.1 kg

DRUGS (2)
  1. OLYSIO [Suspect]
     Active Substance: SIMEPREVIR
     Indication: HEPATITIS C
     Route: 048
     Dates: start: 20140225, end: 20140321
  2. SOVALDI [Suspect]
     Active Substance: SOFOSBUVIR
     Indication: HEPATITIS C
     Route: 048
     Dates: start: 20140225, end: 20140321

REACTIONS (6)
  - Renal failure [None]
  - Toxicity to various agents [None]
  - Shock [None]
  - Generalised oedema [None]
  - Pneumonia [None]
  - Nephropathy [None]

NARRATIVE: CASE EVENT DATE: 20140317
